FAERS Safety Report 6712786-1 (Version None)
Quarter: 2010Q2

REPORT INFORMATION
  Report Type: 
  Country: None (occurrence: None)
  Receive Date: 20100506
  Receipt Date: 20100430
  Transmission Date: 20101027
  Serious: Yes (Hospitalization)
  Sender: FDA-Public Use
  Company Number: FR-SANOFI-AVENTIS-2010SA024995

PATIENT
  Age: 75 Year
  Sex: Male
  Weight: 70 kg

DRUGS (12)
  1. NASACORT [Suspect]
     Dosage: DOSE:2 PUFF(S)
     Route: 045
     Dates: end: 20100212
  2. SYMBICORT [Interacting]
     Dosage: DOSE:2 PUFF(S)
     Route: 045
     Dates: end: 20100212
  3. KALETRA [Interacting]
     Route: 048
  4. ABACAVIR SULFATE AND LAMIVUDINE [Concomitant]
     Route: 048
  5. INSULIN [Concomitant]
     Route: 058
     Dates: start: 20070101
  6. COTAREG ^NOVARTIS^ [Concomitant]
     Route: 048
     Dates: end: 20100221
  7. PLAVIX [Concomitant]
     Route: 048
  8. LYRICA [Concomitant]
     Route: 048
  9. ESOMEPRAZOLE [Concomitant]
  10. BRICANYL [Concomitant]
  11. LASIX [Concomitant]
     Dates: end: 20100218
  12. AMOXICILLIN AND CLAVULANATE POTASSIUM [Concomitant]

REACTIONS (3)
  - ADRENOCORTICAL INSUFFICIENCY ACUTE [None]
  - CUSHINGOID [None]
  - DRUG INTERACTION [None]
